FAERS Safety Report 18872045 (Version 2)
Quarter: 2021Q1

REPORT INFORMATION
  Report Type: Spontaneous
  Country: JP (occurrence: JP)
  Receive Date: 20210210
  Receipt Date: 20210331
  Transmission Date: 20210420
  Serious: Yes (Other)
  Sender: FDA-Public Use
  Company Number: NVSJ2021JP001729

PATIENT
  Age: 77 Year
  Sex: Male

DRUGS (1)
  1. VOLTAREN TAPE [Suspect]
     Active Substance: DICLOFENAC SODIUM
     Indication: ARTHRALGIA
     Dosage: 150 MG
     Route: 062
     Dates: start: 20210125, end: 20210125

REACTIONS (3)
  - Ecchymosis [Unknown]
  - Haemorrhage subcutaneous [Recovered/Resolved]
  - Application site erythema [Unknown]

NARRATIVE: CASE EVENT DATE: 20210125
